FAERS Safety Report 15524237 (Version 1)
Quarter: 2018Q4

REPORT INFORMATION
  Report Type: Other
  Country: NL (occurrence: NL)
  Receive Date: 20181018
  Receipt Date: 20181018
  Transmission Date: 20190205
  Serious: Yes (Hospitalization, Other)
  Sender: FDA-Public Use
  Company Number: NL-APOTEX-2018AP022918

PATIENT
  Age: 69 Year
  Sex: Male
  Weight: 75 kg

DRUGS (15)
  1. ROACTEMRA [Suspect]
     Active Substance: TOCILIZUMAB
     Indication: RHEUMATOID ARTHRITIS
     Dosage: 600 MG, Q.M.T.
     Route: 042
     Dates: start: 20160315
  2. ROACTEMRA [Suspect]
     Active Substance: TOCILIZUMAB
     Dosage: LAST DOSE PIOR TO EVENT WAS RECEIVED ON 15/MAR/2016
     Route: 042
     Dates: start: 20130731
  3. BISOPROLOL [Concomitant]
     Active Substance: BISOPROLOL
     Indication: HYPERTENSION
     Dosage: 5 MG, QD
     Route: 048
     Dates: start: 20051024
  4. ROACTEMRA [Suspect]
     Active Substance: TOCILIZUMAB
     Dosage: 600 MG, QMO
     Route: 042
     Dates: start: 20151222
  5. ATORVASTATIN [Concomitant]
     Active Substance: ATORVASTATIN
     Indication: PRODUCT USED FOR UNKNOWN INDICATION
     Dosage: 20 MG, QD
     Route: 048
     Dates: start: 20051024
  6. ACETYLSALICYLIC ACID [Concomitant]
     Active Substance: ASPIRIN
     Indication: MYOCARDIAL INFARCTION
     Dosage: 80 MG, QD
     Route: 048
     Dates: start: 20051024
  7. CELECOXIB. [Suspect]
     Active Substance: CELECOXIB
     Dosage: 400 MG, QD
     Route: 048
     Dates: start: 20130226
  8. ROACTEMRA [Suspect]
     Active Substance: TOCILIZUMAB
     Dosage: 600 MG, QMO
     Route: 042
     Dates: start: 20160217
  9. OMEPRAZOLE. [Concomitant]
     Active Substance: OMEPRAZOLE
     Indication: PROPHYLAXIS
     Dosage: 40 MG, QD
     Route: 048
     Dates: start: 20010521
  10. CELECOXIB. [Suspect]
     Active Substance: CELECOXIB
     Indication: RHEUMATOID ARTHRITIS
     Dosage: 200 MG, QD
     Route: 048
     Dates: start: 20130226
  11. ACETAMINOPHEN. [Suspect]
     Active Substance: ACETAMINOPHEN
     Indication: RHEUMATOID ARTHRITIS
     Dosage: 1000 MG, QD/3000MG QD
     Route: 048
     Dates: start: 20130226
  12. ROACTEMRA [Suspect]
     Active Substance: TOCILIZUMAB
     Dosage: 600 MG, Q.M.T.
     Route: 042
     Dates: start: 20160119
  13. PARACETAMOL [Concomitant]
     Active Substance: ACETAMINOPHEN
     Indication: PRODUCT USED FOR UNKNOWN INDICATION
     Dosage: 1000 MG, QD
     Route: 048
  14. ROACTEMRA [Suspect]
     Active Substance: TOCILIZUMAB
     Dosage: 8 MG/KG, Q4W FOUR WEEKS
     Route: 042
     Dates: start: 20120327
  15. ROACTEMRA [Suspect]
     Active Substance: TOCILIZUMAB
     Dosage: 300 MG, QMO 300 MG, Q.M.T.
     Route: 042
     Dates: start: 20160305

REACTIONS (2)
  - Localised infection [Recovered/Resolved]
  - Wound infection [Recovered/Resolved]

NARRATIVE: CASE EVENT DATE: 20160415
